FAERS Safety Report 21020113 (Version 2)
Quarter: 2022Q3

REPORT INFORMATION
  Report Type: Spontaneous
  Country: JP (occurrence: JP)
  Receive Date: 20220628
  Receipt Date: 20220722
  Transmission Date: 20221027
  Serious: Yes (Other)
  Sender: FDA-Public Use
  Company Number: JP-ONO-2022JP017074

PATIENT

DRUGS (16)
  1. ONGENTYS [Suspect]
     Active Substance: OPICAPONE
     Indication: Parkinson^s disease
     Dosage: UNK, DAILY AT 05:00 A.M. ON AWAKENING
     Route: 048
  2. ONGENTYS [Suspect]
     Active Substance: OPICAPONE
     Dosage: UNK, EVERY OTHER DAY (QOD)
     Route: 048
  3. METHIMAZOLE [Concomitant]
     Active Substance: METHIMAZOLE
     Dosage: UNKNOWN
  4. REBAMIPIDE [Concomitant]
     Active Substance: REBAMIPIDE
     Dosage: UNKNOWN
  5. BENSERAZIDE HYDROCHLORIDE\LEVODOPA [Concomitant]
     Active Substance: BENSERAZIDE HYDROCHLORIDE\LEVODOPA
     Dosage: 2-2-2-1 TABLETS AT 06:00 A.M.-11:00 A.M.-03:00 P.M.-06:00 P.M., RESPECTIVELY
  6. HICEE [ASCORBIC ACID] [Concomitant]
     Dosage: UNKNOWN
  7. KETOPROFEN [Concomitant]
     Active Substance: KETOPROFEN
     Dosage: UNKNOWN
  8. MOSAPRIDE CITRATE [Concomitant]
     Active Substance: MOSAPRIDE CITRATE
     Dosage: UNKNOWN
  9. VONOPRAZAN FUMARATE [Concomitant]
     Active Substance: VONOPRAZAN FUMARATE
     Dosage: UNKNOWN
  10. NEUPRO [Concomitant]
     Active Substance: ROTIGOTINE
     Dosage: UNKNOWN
  11. CERCINE [Concomitant]
     Active Substance: DIAZEPAM
     Dosage: UNKNOWN
  12. AZILECT [Concomitant]
     Active Substance: RASAGILINE MESYLATE
     Dosage: UNKNOWN
  13. LUNESTA [Concomitant]
     Active Substance: ESZOPICLONE
     Dosage: UNKNOWN
  14. ENORAS [Concomitant]
  15. MIDODRINE HYDROCHLORIDE [Concomitant]
     Active Substance: MIDODRINE HYDROCHLORIDE
     Dosage: UNKNOWN
  16. GLYCOSAMINOGLYCANS [Concomitant]
     Active Substance: GLYCOSAMINOGLYCANS
     Dosage: UNKNOWN

REACTIONS (7)
  - Altered state of consciousness [Unknown]
  - Delirium [Unknown]
  - Hallucination [Unknown]
  - Dizziness [Unknown]
  - Orthostatic hypotension [Unknown]
  - Somnolence [Unknown]
  - Intentional product misuse [Unknown]

NARRATIVE: CASE EVENT DATE: 20220101
